FAERS Safety Report 8040624-6 (Version None)
Quarter: 2012Q1

REPORT INFORMATION
  Report Type: 
  Country: None (occurrence: None)
  Receive Date: 20120111
  Receipt Date: 20111231
  Transmission Date: 20120608
  Serious: No
  Sender: FDA-Public Use
  Company Number: US-AMGEN-USASP2011067309

PATIENT
  Age: 40 Year
  Sex: Female

DRUGS (1)
  1. ENBREL [Suspect]
     Indication: RHEUMATOID ARTHRITIS
     Dosage: 50 MG, QWK
     Dates: start: 20111128

REACTIONS (5)
  - ARTHRALGIA [None]
  - OEDEMA PERIPHERAL [None]
  - HYPOAESTHESIA [None]
  - INJECTION SITE RASH [None]
  - RASH ERYTHEMATOUS [None]
